FAERS Safety Report 19419346 (Version 2)
Quarter: 2021Q2

REPORT INFORMATION
  Report Type: Spontaneous
  Country: IN (occurrence: IN)
  Receive Date: 20210615
  Receipt Date: 20210630
  Transmission Date: 20210717
  Serious: Yes (Death, Hospitalization, Other)
  Sender: FDA-Public Use
  Company Number: IN-PFIZER INC-2021688897

PATIENT
  Age: 79 Year
  Sex: Female

DRUGS (2)
  1. PALBACE [Suspect]
     Active Substance: PALBOCICLIB
     Indication: BREAST CANCER METASTATIC
     Dosage: 100 MG
     Route: 048
     Dates: start: 20210417
  2. PALBACE [Suspect]
     Active Substance: PALBOCICLIB
     Dosage: 125 MG, 1X/DAY
     Route: 048
     Dates: start: 20210419, end: 20210525

REACTIONS (5)
  - Decreased appetite [Unknown]
  - Death [Fatal]
  - Dysgeusia [Unknown]
  - Salivary hypersecretion [Unknown]
  - Coma [Unknown]

NARRATIVE: CASE EVENT DATE: 20210525
